APPROVED DRUG PRODUCT: THIOTHIXENE HYDROCHLORIDE
Active Ingredient: THIOTHIXENE HYDROCHLORIDE
Strength: EQ 5MG BASE/ML
Dosage Form/Route: CONCENTRATE;ORAL
Application: A071184 | Product #001
Applicant: TEVA PHARMACEUTICALS USA INC
Approved: Jun 22, 1987 | RLD: No | RS: No | Type: DISCN